FAERS Safety Report 25733558 (Version 2)
Quarter: 2025Q3

REPORT INFORMATION
  Report Type: Spontaneous
  Country: US (occurrence: US)
  Receive Date: 20250828
  Receipt Date: 20250917
  Transmission Date: 20251020
  Serious: Yes (Other)
  Sender: ALEXION PHARMACEUTICALS
  Company Number: US-AstraZeneca-CH-00937499A

PATIENT

DRUGS (1)
  1. TRUQAP [Suspect]
     Active Substance: CAPIVASERTIB
     Indication: Breast cancer female
     Route: 065

REACTIONS (5)
  - Metastases to bone [Unknown]
  - Drug ineffective [Unknown]
  - Drug abuse [Unknown]
  - Product formulation issue [Unknown]
  - Toxicity to various agents [Unknown]
